FAERS Safety Report 9246997 (Version 1)
Quarter: 2013Q2

REPORT INFORMATION
  Report Type: Spontaneous
  Country: FR (occurrence: FR)
  Receive Date: 20130422
  Receipt Date: 20130422
  Transmission Date: 20140414
  Serious: Yes (Hospitalization)
  Sender: FDA-Public Use
  Company Number: FR-ABBOTT-13X-056-1078754-00

PATIENT
  Age: 86 Year
  Sex: Female

DRUGS (9)
  1. LIPANTHYL [Suspect]
     Indication: HYPERTENSION
     Route: 048
     Dates: end: 20130418
  2. LIPANTHYL [Suspect]
     Indication: HYPERCHOLESTEROLAEMIA
  3. STILNOX [Suspect]
     Indication: ANXIETY DISORDER
     Route: 048
     Dates: end: 20130418
  4. STILNOX [Suspect]
     Indication: HYPERTENSION
  5. MIRTAZAPINE [Suspect]
     Indication: ANXIETY DISORDER
     Route: 048
     Dates: end: 20120510
  6. MIRTAZAPINE [Suspect]
     Indication: HYPERTENSION
  7. LEVOTHYROX [Concomitant]
     Indication: HYPOTHYROIDISM
     Route: 048
  8. INEXIUM [Concomitant]
     Indication: GASTRITIS
     Route: 048
  9. TOPAAL [Concomitant]
     Indication: GASTRITIS
     Dates: end: 20120418

REACTIONS (7)
  - Ecchymosis [Unknown]
  - Rhabdomyolysis [Recovered/Resolved]
  - Malaise [Recovered/Resolved]
  - Fall [Recovered/Resolved]
  - Dysstasia [Recovered/Resolved]
  - Pain [Unknown]
  - Treatment noncompliance [Unknown]
